FAERS Safety Report 4366822-0 (Version None)
Quarter: 2004Q2

REPORT INFORMATION
  Report Type: 
  Country: None (occurrence: None)
  Receive Date: 20040520
  Receipt Date: 20040511
  Transmission Date: 20050107
  Serious: Yes (Hospitalization, Disabling, Other)
  Sender: FDA-Public Use
  Company Number: 2003029605

PATIENT
  Age: 33 Year
  Sex: Male

DRUGS (13)
  1. LIPITOR [Suspect]
     Indication: BLOOD CHOLESTEROL INCREASED
     Dosage: 10 MG DAILY
     Dates: start: 19980101
  2. LISINOPRIL [Suspect]
     Indication: HYPERTENSION
     Dosage: 10 MG DAILY
     Dates: start: 19981010, end: 19981101
  3. NAPROXEN SODIUM [Suspect]
     Indication: LIMB DISCOMFORT
     Dosage: ORAL
     Route: 048
     Dates: start: 20020301, end: 20020309
  4. BUPROPION HYDROCHLORIDE [Concomitant]
  5. FLUTICASONE PROPIONATE [Concomitant]
  6. SALBUTAMOL (SALBUTAMOL) [Concomitant]
  7. FLUVOXAMINE MALEATE [Concomitant]
  8. PAROXETINE HCL [Concomitant]
  9. METHYLPHENIDATE HCL [Concomitant]
  10. ACETYL SALICYLIC ACID USP BAT [Concomitant]
  11. METFORMIN HCL [Concomitant]
  12. MULTIPLE VITAMINS (ERGOCALCIFEROL, ASCORBIC ACID, TOCOPHEROL, FOLIC AC [Concomitant]
  13. TRAZONE (TRAZONE) [Concomitant]

REACTIONS (60)
  - ALBUMIN URINE PRESENT [None]
  - ARTHRALGIA [None]
  - ASTHMA [None]
  - BLOOD BICARBONATE DECREASED [None]
  - BLOOD CALCIUM INCREASED [None]
  - BLOOD CREATININE DECREASED [None]
  - BLOOD CREATININE INCREASED [None]
  - BLOOD DISORDER [None]
  - BLOOD GLUCOSE DECREASED [None]
  - BLOOD LACTATE DEHYDROGENASE INCREASED [None]
  - BLOOD PARATHYROID HORMONE DECREASED [None]
  - BLOOD PHOSPHORUS INCREASED [None]
  - BLOOD URINE [None]
  - BRONCHITIS ACUTE [None]
  - CATHETER RELATED COMPLICATION [None]
  - CHEST DISCOMFORT [None]
  - CONTUSION [None]
  - CULTURE URINE POSITIVE [None]
  - DRUG ABUSER [None]
  - DRY SKIN [None]
  - DYSURIA [None]
  - ECZEMA [None]
  - GAIT DISTURBANCE [None]
  - GLUCOSE URINE [None]
  - HAEMATOCRIT DECREASED [None]
  - HAEMODIALYSIS [None]
  - HAEMOGLOBIN DECREASED [None]
  - HEPATIC STEATOSIS [None]
  - HYPERGLYCAEMIA [None]
  - INJECTION SITE HAEMORRHAGE [None]
  - JOINT CREPITATION [None]
  - JOINT SPRAIN [None]
  - JOINT STIFFNESS [None]
  - JOINT SWELLING [None]
  - MEAN CELL HAEMOGLOBIN CONCENTRATION DECREASED [None]
  - MENISCUS LESION [None]
  - MIDDLE INSOMNIA [None]
  - NITRITE URINE PRESENT [None]
  - NUCLEAR MAGNETIC RESONANCE IMAGING ABNORMAL [None]
  - PAIN [None]
  - PAIN IN EXTREMITY [None]
  - PLATELET COUNT INCREASED [None]
  - POLYURIA [None]
  - PROTEIN URINE [None]
  - RASH [None]
  - RED BLOOD CELL COUNT DECREASED [None]
  - RESPIRATORY DISTRESS [None]
  - SCROTAL DISORDER [None]
  - SINUS TACHYCARDIA [None]
  - SKIN FISSURES [None]
  - SPUTUM DISCOLOURED [None]
  - SUICIDE ATTEMPT [None]
  - TENDERNESS [None]
  - THROMBOSIS [None]
  - TRANSFERRIN SATURATION DECREASED [None]
  - UPPER RESPIRATORY TRACT INFECTION [None]
  - URINE KETONE BODY PRESENT [None]
  - URINE LEUKOCYTE ESTERASE POSITIVE [None]
  - VISION BLURRED [None]
  - WHEEZING [None]
